FAERS Safety Report 4686836-0 (Version None)
Quarter: 2005Q2

REPORT INFORMATION
  Report Type: 
  Country: None (occurrence: None)
  Receive Date: 20050608
  Receipt Date: 20050520
  Transmission Date: 20051028
  Serious: Yes (Hospitalization)
  Sender: FDA-Public Use
  Company Number: DSA_26545_2005

PATIENT
  Age: 62 Year
  Sex: Male
  Weight: 112.4921 kg

DRUGS (4)
  1. CARDIZEM LA [Suspect]
     Indication: HEART RATE IRREGULAR
     Dosage: 90 MG BID PO
     Route: 048
     Dates: start: 20050101, end: 20050501
  2. CARDIZEM LA [Suspect]
     Indication: HEART RATE IRREGULAR
     Dosage: 60 MG BID
     Dates: start: 20050501, end: 20050501
  3. CARDIZEM LA [Suspect]
     Indication: HEART RATE IRREGULAR
     Dosage: 90 MG BID PO
     Route: 048
     Dates: start: 20050101
  4. VERAPAMIL [Concomitant]

REACTIONS (6)
  - ATRIAL FIBRILLATION [None]
  - BURNING SENSATION [None]
  - HYPOAESTHESIA [None]
  - LOCAL SWELLING [None]
  - MUSCLE SPASMS [None]
  - SWELLING FACE [None]
